FAERS Safety Report 6129513-1 (Version None)
Quarter: 2009Q1

REPORT INFORMATION
  Report Type: 
  Country: None (occurrence: None)
  Receive Date: 20090324
  Receipt Date: 20090313
  Transmission Date: 20090719
  Serious: Yes (Death, Hospitalization)
  Sender: FDA-Public Use
  Company Number: FR-ROCHE-612144

PATIENT
  Sex: Male

DRUGS (10)
  1. ROVALCYTE [Suspect]
     Dosage: DOSE: 2 DOSES QD.
     Route: 048
     Dates: start: 20081126, end: 20090107
  2. ATHYMIL [Suspect]
     Indication: DEPRESSION
     Route: 048
     Dates: end: 20090109
  3. PROGRAF [Concomitant]
     Indication: IMMUNOSUPPRESSION
  4. CORTANCYL [Concomitant]
     Indication: IMMUNOSUPPRESSION
  5. CELLCEPT [Concomitant]
     Indication: IMMUNOSUPPRESSION
  6. TAZOCILLINE [Concomitant]
  7. COLIMYCIN [Concomitant]
  8. NEGABAN [Concomitant]
     Dates: start: 20080112
  9. FUNGIZONE [Concomitant]
     Dates: end: 20090109
  10. VFEND [Concomitant]

REACTIONS (1)
  - NEUTROPENIA [None]
